FAERS Safety Report 20108844 (Version 1)
Quarter: 2021Q4

REPORT INFORMATION
  Report Type: Spontaneous
  Country: CN (occurrence: CN)
  Receive Date: 20211124
  Receipt Date: 20211124
  Transmission Date: 20220303
  Serious: Yes (Death)
  Sender: FDA-Public Use
  Company Number: CN-AMNEAL PHARMACEUTICALS-2021-AMRX-04677

PATIENT

DRUGS (4)
  1. LEVOLEUCOVORIN [Suspect]
     Active Substance: LEVOLEUCOVORIN
     Indication: Hepatocellular carcinoma
     Dosage: 400 MILLIGRAM/SQ. METER
     Route: 065
  2. OXALIPLATIN [Suspect]
     Active Substance: OXALIPLATIN
     Indication: Hepatocellular carcinoma
     Dosage: 130 MILLIGRAM/SQ. METER
     Route: 065
  3. FLUOROURACIL [Suspect]
     Active Substance: FLUOROURACIL
     Indication: Hepatocellular carcinoma
     Dosage: 400 MILLIGRAM/SQ. METER, ON DAY 1
     Route: 065
  4. FLUOROURACIL [Suspect]
     Active Substance: FLUOROURACIL
     Dosage: 2400 MILLIGRAM/SQ. METER, EVERY 3 WEEKS
     Route: 065

REACTIONS (1)
  - Adverse event [Fatal]
